FAERS Safety Report 16932483 (Version 3)
Quarter: 2021Q1

REPORT INFORMATION
  Report Type: Spontaneous
  Country: US (occurrence: US)
  Receive Date: 20191017
  Receipt Date: 20210105
  Transmission Date: 20210419
  Serious: Yes (Other)
  Sender: FDA-Public Use
  Company Number: US-AMGEN-USASP2019171102

PATIENT
  Age: 34 Year
  Sex: Female

DRUGS (6)
  1. FILGRASTIM [Suspect]
     Active Substance: FILGRASTIM
     Indication: HAEMATOPOIETIC STEM CELL MOBILISATION
     Dosage: 5?10 MICROGRAM/KG/DAY
     Route: 058
  2. METHYLPREDNISOLONE. [Concomitant]
     Active Substance: METHYLPREDNISOLONE
     Indication: STEM CELL TRANSPLANT
     Dosage: 1000 MILLIGRAM, 30 MINUTES PRIOR TO RATG INFUSION
     Route: 042
  3. COPAXONE [Concomitant]
     Active Substance: GLATIRAMER ACETATE
     Indication: STEM CELL TRANSPLANT
     Dosage: UNK
  4. CYCLOPHOSPHAMIDE. [Concomitant]
     Active Substance: CYCLOPHOSPHAMIDE
     Indication: STEM CELL TRANSPLANT
     Dosage: 02 GRAM/M2
     Route: 042
  5. MESNA. [Concomitant]
     Active Substance: MESNA
     Indication: STEM CELL TRANSPLANT
     Dosage: UNK
     Route: 042
  6. THYMOGLOBULIN [Concomitant]
     Active Substance: LAPINE T-LYMPHOCYTE IMMUNE GLOBULIN
     Indication: STEM CELL TRANSPLANT
     Dosage: 500 MILLIGRAM
     Route: 042

REACTIONS (1)
  - Neuromyelitis optica spectrum disorder [Unknown]
